FAERS Safety Report 19486956 (Version 1)
Quarter: 2021Q3

REPORT INFORMATION
  Report Type: Spontaneous
  Country: US (occurrence: US)
  Receive Date: 20210702
  Receipt Date: 20210702
  Transmission Date: 20211014
  Serious: Yes (Other)
  Sender: FDA-Public Use
  Company Number: US-FRESENIUS KABI-FK202106756

PATIENT
  Age: 74 Year
  Sex: Male
  Weight: 111.4 kg

DRUGS (27)
  1. DOXORUBICIN HYDROCHLORIDE. [Concomitant]
     Active Substance: DOXORUBICIN HYDROCHLORIDE
     Indication: PRODUCT USED FOR UNKNOWN INDICATION
     Dosage: END DATE: UNKNOWN?NOT PROVIDED, UNK?RCHOP
     Route: 065
     Dates: start: 2016
  2. LENALIDOMIDE [Concomitant]
     Active Substance: LENALIDOMIDE
     Indication: PRODUCT USED FOR UNKNOWN INDICATION
     Dosage: DISCONTINUED?NOT PROVIDED, UNK
     Route: 065
     Dates: start: 20180918
  3. METHOTREXATE. [Concomitant]
     Active Substance: METHOTREXATE
     Indication: PRODUCT USED FOR UNKNOWN INDICATION
     Dosage: END DATE: UNKNOWN?NOT PROVIDED, UNK?HYPER CVAD
     Route: 065
     Dates: start: 2017
  4. CYCLOPHOSPHAMIDE. [Suspect]
     Active Substance: CYCLOPHOSPHAMIDE
     Indication: DIFFUSE LARGE B-CELL LYMPHOMA
     Route: 042
     Dates: start: 20170412, end: 20170414
  5. CYCLOPHOSPHAMIDE. [Concomitant]
     Active Substance: CYCLOPHOSPHAMIDE
     Indication: PRODUCT USED FOR UNKNOWN INDICATION
     Dosage: END DATE: UNKNOWN?NOT PROVIDED, UNK?RCHOP
     Route: 065
     Dates: start: 2016
  6. METHYLPREDNISOLONE. [Concomitant]
     Active Substance: METHYLPREDNISOLONE
     Indication: PRODUCT USED FOR UNKNOWN INDICATION
     Dosage: END DATE: UNKNOWN?NOT PROVIDED, UNK?HYPER CVAD
     Route: 065
     Dates: start: 2017
  7. DOXORUBICIN HYDROCHLORIDE. [Concomitant]
     Active Substance: DOXORUBICIN HYDROCHLORIDE
     Dosage: END DATE: UNKNOWN?NOT PROVIDED, UNK?R EPOCH
     Route: 065
     Dates: start: 2016
  8. RITUXIMAB. [Concomitant]
     Active Substance: RITUXIMAB
     Indication: PRODUCT USED FOR UNKNOWN INDICATION
     Dosage: END DATE: UNKNOWN?NOT PROVIDED, UNK?RCHOP
     Route: 065
     Dates: start: 2016
  9. RITUXIMAB. [Concomitant]
     Active Substance: RITUXIMAB
     Dosage: END DATE: UNKNOWN?NOT PROVIDED, UNK
     Route: 065
     Dates: start: 20180918
  10. ETOPOSIDE. [Concomitant]
     Active Substance: ETOPOSIDE
     Indication: PRODUCT USED FOR UNKNOWN INDICATION
     Dosage: END DATE: UNKNOWN?NOT PROVIDED, UNK?R EPOCH
     Route: 065
     Dates: start: 2016
  11. DOXORUBICIN [Concomitant]
     Active Substance: DOXORUBICIN
     Indication: PRODUCT USED FOR UNKNOWN INDICATION
     Dosage: END DATE: UNKNOWN?NOT PROVIDED, UNK?HYPER CVAD
     Route: 065
     Dates: start: 2017
  12. LISOCABTAGENE MARALEUCEL. [Suspect]
     Active Substance: LISOCABTAGENE MARALEUCEL
     Indication: DIFFUSE LARGE B-CELL LYMPHOMA
     Dosage: 1 X 10^8 CAR + T CELLS, SINGLE
     Route: 042
     Dates: start: 20170418, end: 20170418
  13. VINCRISTINE SULFATE. [Concomitant]
     Active Substance: VINCRISTINE SULFATE
     Indication: PRODUCT USED FOR UNKNOWN INDICATION
     Dosage: END DATE: UNKNOWN?NOT PROVIDED, UNK?RCHOP
     Route: 065
     Dates: start: 2016
  14. CYTARABINE. [Concomitant]
     Active Substance: CYTARABINE
     Indication: PRODUCT USED FOR UNKNOWN INDICATION
     Dosage: END DATE: UNKNOWN?NOT PROVIDED, UNK?HYPER CVAD
     Route: 065
     Dates: start: 2017
  15. FLUDARABINE [Suspect]
     Active Substance: FLUDARABINE PHOSPHATE
     Route: 042
     Dates: start: 20180531, end: 20180602
  16. CYCLOPHOSPHAMIDE. [Suspect]
     Active Substance: CYCLOPHOSPHAMIDE
     Route: 042
     Dates: start: 20180531, end: 20180602
  17. CYCLOPHOSPHAMIDE. [Concomitant]
     Active Substance: CYCLOPHOSPHAMIDE
     Dosage: END DATE: UNKNOWN?NOT PROVIDED, UNK?HYPER CVAD
     Route: 065
     Dates: start: 2017
  18. VINCRISTINE SULFATE. [Concomitant]
     Active Substance: VINCRISTINE SULFATE
     Dosage: END DATE: UNKNOWN?NOT PROVIDED, UNK?RCHOP
     Route: 065
     Dates: start: 2016
  19. RITUXIMAB. [Concomitant]
     Active Substance: RITUXIMAB
     Dosage: END DATE: UNKNOWN?NOT PROVIDED, UNK?R EPOCH
     Route: 065
     Dates: start: 2016
  20. DEXAMETHASONE. [Concomitant]
     Active Substance: DEXAMETHASONE
     Indication: PRODUCT USED FOR UNKNOWN INDICATION
     Dosage: END DATE: UNKNOWN?NOT PROVIDED, UNK?HYPER CVAD
     Route: 065
     Dates: start: 2017
  21. VINCRISTINE [Concomitant]
     Active Substance: VINCRISTINE
     Indication: PRODUCT USED FOR UNKNOWN INDICATION
     Dosage: END DATE: UNKNOWN?NOT PROVIDED, UNK?HYPER CVAD
     Route: 065
     Dates: start: 2017
  22. FOLINIC ACID [Concomitant]
     Active Substance: LEUCOVORIN
     Indication: PRODUCT USED FOR UNKNOWN INDICATION
     Dosage: END DATE: UNKNOWN?NOT PROVIDED, UNK?HYPER CVAD
     Route: 065
     Dates: start: 2017
  23. LISOCABTAGENE MARALEUCEL. [Suspect]
     Active Substance: LISOCABTAGENE MARALEUCEL
     Dosage: 1 X 10^8 CAR + T CELLS, SINGLE
     Route: 042
     Dates: start: 20180605, end: 20180605
  24. CYCLOPHOSPHAMIDE. [Concomitant]
     Active Substance: CYCLOPHOSPHAMIDE
     Dosage: END DATE: UNKNOWN?NOT PROVIDED, UNK?RCHOP
     Route: 065
     Dates: start: 2016
  25. PREDNISONE. [Concomitant]
     Active Substance: PREDNISONE
     Dosage: END DATE: UNKNOWN?NOT PROVIDED, UNK?RCHOP
     Route: 065
     Dates: start: 2016
  26. FLUDARABINE [Suspect]
     Active Substance: FLUDARABINE PHOSPHATE
     Indication: DIFFUSE LARGE B-CELL LYMPHOMA
     Route: 042
     Dates: start: 20170412, end: 20170414
  27. PREDNISONE. [Concomitant]
     Active Substance: PREDNISONE
     Indication: PRODUCT USED FOR UNKNOWN INDICATION
     Dosage: END DATE: UNKNOWN?NOT PROVIDED, UNK?RCHOP
     Route: 065
     Dates: start: 2016

REACTIONS (1)
  - Myelodysplastic syndrome [Not Recovered/Not Resolved]

NARRATIVE: CASE EVENT DATE: 20210531
